FAERS Safety Report 24654126 (Version 2)
Quarter: 2024Q4

REPORT INFORMATION
  Report Type: Report from Study
  Country: US (occurrence: US)
  Receive Date: 20241122
  Receipt Date: 20241128
  Transmission Date: 20250114
  Serious: Yes (Other)
  Sender: ABBVIE
  Company Number: US-ABBVIE-5995203

PATIENT
  Age: 62 Year
  Sex: Female
  Weight: 56 kg

DRUGS (5)
  1. SKYRIZI [Suspect]
     Active Substance: RISANKIZUMAB-RZAA
     Indication: Crohn^s disease
     Dosage: FORM STRENGTH: 180 MILLIGRAM
     Route: 058
     Dates: start: 20240607, end: 20241106
  2. SKYRIZI [Suspect]
     Active Substance: RISANKIZUMAB-RZAA
     Dosage: LAST ADMIN DATE: 2024
     Route: 058
     Dates: start: 202409
  3. SKYRIZI [Suspect]
     Active Substance: RISANKIZUMAB-RZAA
     Indication: Crohn^s disease
     Dosage: 1ST INFUSION
     Route: 042
     Dates: start: 20240607, end: 20240607
  4. SKYRIZI [Suspect]
     Active Substance: RISANKIZUMAB-RZAA
     Indication: Crohn^s disease
     Dosage: 2ND INFUSION
     Route: 042
     Dates: start: 202407, end: 202407
  5. SKYRIZI [Suspect]
     Active Substance: RISANKIZUMAB-RZAA
     Indication: Crohn^s disease
     Dosage: 3RD INFUSION
     Route: 042
     Dates: start: 202408, end: 202408

REACTIONS (3)
  - Squamous cell carcinoma of skin [Recovering/Resolving]
  - Fatigue [Not Recovered/Not Resolved]
  - Pain [Not Recovered/Not Resolved]

NARRATIVE: CASE EVENT DATE: 20240101
